FAERS Safety Report 8072587-1 (Version None)
Quarter: 2012Q1

REPORT INFORMATION
  Report Type: 
  Country: None (occurrence: None)
  Receive Date: 20120126
  Receipt Date: 20120118
  Transmission Date: 20120608
  Serious: Yes (Hospitalization)
  Sender: FDA-Public Use
  Company Number: JP-SHIRE-ALL1-2012-00351

PATIENT
  Age: 60 Year
  Sex: Male

DRUGS (2)
  1. FOSRENOL [Suspect]
     Indication: HYPERPHOSPHATAEMIA
  2. FOSRENOL [Suspect]
     Indication: RENAL FAILURE CHRONIC
     Dosage: 1500 MG, DAILY DOSE
     Route: 048

REACTIONS (2)
  - WRONG TECHNIQUE IN DRUG USAGE PROCESS [None]
  - ILEUS [None]
